FAERS Safety Report 10785055 (Version 2)
Quarter: 2015Q1

REPORT INFORMATION
  Report Type: Report from Study
  Country: MX (occurrence: MX)
  Receive Date: 20150211
  Receipt Date: 20150325
  Transmission Date: 20150721
  Serious: Yes (Other)
  Sender: FDA-Public Use
  Company Number: MX-SA-2015SA016472

PATIENT
  Sex: Female

DRUGS (2)
  1. TRITACE [Suspect]
     Active Substance: RAMIPRIL
     Route: 065
  2. AMARYL [Suspect]
     Active Substance: GLIMEPIRIDE
     Route: 065

REACTIONS (2)
  - Amnesia [Unknown]
  - Gait disturbance [Unknown]
